FAERS Safety Report 8997316 (Version 5)
Quarter: 2013Q2

REPORT INFORMATION
  Report Type: Spontaneous
  Country: US (occurrence: US)
  Receive Date: 20130104
  Receipt Date: 20130419
  Transmission Date: 20140414
  Serious: Yes (Hospitalization, Disabling, Other)
  Sender: FDA-Public Use
  Company Number: US-009507513-1212USA010559

PATIENT
  Sex: Female
  Weight: 52.15 kg

DRUGS (12)
  1. FOSAMAX [Suspect]
     Indication: OSTEOPENIA
     Dosage: 10 MG, UNK
     Route: 048
     Dates: start: 20000713, end: 20000914
  2. FOSAMAX [Suspect]
     Indication: OSTEOPOROSIS
     Dosage: 70 MG, QW
     Route: 048
     Dates: start: 20010126, end: 20101220
  3. ALENDRONATE SODIUM [Suspect]
     Indication: OSTEOPENIA
     Dosage: 70 MG, QW
     Route: 048
     Dates: start: 20090105, end: 20090420
  4. ALENDRONATE SODIUM [Suspect]
     Indication: OSTEOPOROSIS
  5. ALENDRONATE SODIUM [Suspect]
     Indication: OSTEOPENIA
     Dosage: 70 MG, UNK
     Route: 048
     Dates: start: 20090420, end: 2011
  6. ALENDRONATE SODIUM [Suspect]
     Indication: OSTEOPOROSIS
  7. ACTONEL [Suspect]
     Indication: OSTEOPOROSIS
     Dosage: 35 MG, QW
     Route: 048
     Dates: start: 201108
  8. LEVOTHYROXINE SODIUM [Concomitant]
     Indication: HYPOTHYROIDISM
     Dosage: 88 MICROGRAM, UNK
  9. CENTRUM SILVER [Concomitant]
     Dosage: UNK
  10. CITRACAL + D [Concomitant]
     Dosage: UNK
  11. BUPROPION HYDROCHLORIDE [Concomitant]
     Indication: DEPRESSION
     Dosage: 100 MG, BID
     Dates: start: 19810518
  12. BUPROPION HYDROCHLORIDE [Concomitant]
     Indication: SLEEP DISORDER

REACTIONS (36)
  - Femur fracture [Recovering/Resolving]
  - Fall [Unknown]
  - Breast cancer [Unknown]
  - Closed fracture manipulation [Unknown]
  - Cholecystectomy [Unknown]
  - Femur fracture [Unknown]
  - Gastrectomy [Unknown]
  - Osteoporosis [Unknown]
  - Low turnover osteopathy [Unknown]
  - Multiple fractures [Unknown]
  - Breast cancer [Unknown]
  - Bundle branch block right [Unknown]
  - Dementia Alzheimer^s type [Unknown]
  - Fall [Unknown]
  - Fall [Unknown]
  - Foot fracture [Unknown]
  - Foot fracture [Unknown]
  - Foot fracture [Unknown]
  - Hypertension [Unknown]
  - Chronic obstructive pulmonary disease [Unknown]
  - Dermatitis contact [Unknown]
  - Insomnia [Not Recovered/Not Resolved]
  - Hysterectomy [Unknown]
  - Asthma [Unknown]
  - Bronchitis chronic [Not Recovered/Not Resolved]
  - Cardiac disorder [Unknown]
  - Arthritis [Unknown]
  - Cerebrovascular disorder [Unknown]
  - Cerebral atrophy [Unknown]
  - Decreased appetite [Unknown]
  - Cataract operation [Unknown]
  - Malignant breast lump removal [Unknown]
  - Drug hypersensitivity [Unknown]
  - Drug ineffective [Unknown]
  - Drug ineffective [Unknown]
  - Dizziness [Unknown]
